FAERS Safety Report 11203283 (Version 1)
Quarter: 2015Q2

REPORT INFORMATION
  Report Type: Spontaneous
  Country: US (occurrence: None)
  Receive Date: 20150608
  Receipt Date: 20150608
  Transmission Date: 20150821
  Serious: No
  Sender: FDA-Public Use
  Company Number: HYP201504-000038

PATIENT
  Age: 29 Year
  Sex: Female

DRUGS (3)
  1. CITRULLINE (CITRULLINE) [Concomitant]
  2. AMINO ACIDS [Concomitant]
     Active Substance: AMINO ACIDS
  3. RAVICTI [Suspect]
     Active Substance: GLYCEROL PHENYLBUTYRATE
     Indication: ORNITHINE TRANSCARBAMOYLASE DEFICIENCY
     Dates: start: 201306, end: 20150424

REACTIONS (1)
  - Ammonia increased [None]

NARRATIVE: CASE EVENT DATE: 201504
